FAERS Safety Report 11315150 (Version 4)
Quarter: 2015Q3

REPORT INFORMATION
  Report Type: Report from Study
  Country: FR (occurrence: FR)
  Receive Date: 20150727
  Receipt Date: 20150908
  Transmission Date: 20151125
  Serious: Yes (Death, Hospitalization)
  Sender: FDA-Public Use
  Company Number: PHHY2015FR088697

PATIENT
  Age: 67 Year
  Sex: Male

DRUGS (3)
  1. TINZAPARIN [Concomitant]
     Active Substance: TINZAPARIN
     Indication: PULMONARY EMBOLISM
     Dosage: 12000 IU, UNK
     Route: 065
     Dates: start: 20140702
  2. LDK378 [Suspect]
     Active Substance: CERITINIB
     Indication: LUNG ADENOCARCINOMA
     Dosage: 750 MG, QD
     Route: 048
     Dates: start: 20150601, end: 20150710
  3. OXYCODONE [Concomitant]
     Active Substance: OXYCODONE
     Indication: PAIN
     Dosage: 60 MG, UNK
     Route: 065
     Dates: start: 20141217

REACTIONS (10)
  - Non-small cell lung cancer [Fatal]
  - Malignant neoplasm progression [Fatal]
  - Leukocytosis [Unknown]
  - Blood creatinine increased [Unknown]
  - Epilepsy [Unknown]
  - Metastases to central nervous system [Fatal]
  - Confusional state [Fatal]
  - Haemorrhage intracranial [Fatal]
  - Metastases to liver [Fatal]
  - Disorientation [Fatal]

NARRATIVE: CASE EVENT DATE: 20150706
